FAERS Safety Report 11638388 (Version 1)
Quarter: 2015Q4

REPORT INFORMATION
  Report Type: Report from Study
  Country: DE (occurrence: DE)
  Receive Date: 20151016
  Receipt Date: 20151016
  Transmission Date: 20160304
  Serious: Yes (Other)
  Sender: FDA-Public Use
  Company Number: DE-KADMON PHARMACEUTICALS, LLC-KAD201510-003601

PATIENT
  Age: 59 Year
  Sex: Male
  Weight: 88 kg

DRUGS (9)
  1. METFORMIN [Concomitant]
     Active Substance: METFORMIN HYDROCHLORIDE
  2. CODIOVAN (CO-DIOVAN) [Concomitant]
     Indication: CARDIOVASCULAR DISORDER
  3. EXVIERA [Suspect]
     Active Substance: DASABUVIR
     Indication: HEPATITIS C
     Dosage: TABLET
     Route: 048
     Dates: start: 20150525, end: 20151009
  4. ALLOPURINOL. [Concomitant]
     Active Substance: ALLOPURINOL
  5. CIPROFLOXACIN. [Concomitant]
     Active Substance: CIPROFLOXACIN
     Dates: start: 20150908, end: 20150911
  6. VIEKIRAX [Suspect]
     Active Substance: OMBITASVIR\PARITAPREVIR\RITONAVIR
     Indication: HEPATITIS C
     Dosage: TABLET
     Route: 048
     Dates: start: 20150525, end: 20151009
  7. RIBAVIRIN. [Suspect]
     Active Substance: RIBAVIRIN
     Indication: HEPATITIS C
     Dosage: TABLET
     Route: 048
     Dates: start: 20150525, end: 20151009
  8. TRAMAL [Concomitant]
     Active Substance: TRAMADOL
     Dates: start: 20150825
  9. TOREM 10 [Concomitant]
     Active Substance: TORSEMIDE
     Dates: start: 20150902

REACTIONS (3)
  - Delirium [Unknown]
  - Mental disorder [Unknown]
  - Cognitive disorder [Unknown]

NARRATIVE: CASE EVENT DATE: 20151009
